FAERS Safety Report 9768353 (Version 2)
Quarter: 2014Q1

REPORT INFORMATION
  Report Type: Spontaneous
  Country: US (occurrence: US)
  Receive Date: 20131217
  Receipt Date: 20140312
  Transmission Date: 20141002
  Serious: No
  Sender: FDA-Public Use
  Company Number: US-TEVA-451730USA

PATIENT
  Age: 16 Year
  Sex: Female
  Weight: 54.48 kg

DRUGS (3)
  1. PLAN B ONE-STEP [Suspect]
     Indication: POST COITAL CONTRACEPTION
     Dosage: 1.5 MILLIGRAM DAILY;
     Route: 048
  2. DOXYCYCLINE [Concomitant]
     Indication: ACNE
  3. ANTI-DEPRESSANT [Concomitant]
     Indication: DEPRESSION

REACTIONS (1)
  - Menstruation irregular [Recovered/Resolved]
